FAERS Safety Report 7051439-X (Version None)
Quarter: 2010Q4

REPORT INFORMATION
  Report Type: 
  Country: None (occurrence: None)
  Receive Date: 20101019
  Receipt Date: 20101011
  Transmission Date: 20110411
  Serious: Yes (Hospitalization)
  Sender: FDA-Public Use
  Company Number: A0879526A

PATIENT
  Age: 54 Year
  Sex: Female
  Weight: 129.5 kg

DRUGS (12)
  1. AVANDIA [Suspect]
     Indication: DIABETES MELLITUS
     Route: 048
     Dates: start: 20030401, end: 20080603
  2. ACTOS [Concomitant]
  3. GLUCOTROL [Concomitant]
  4. GLUCOPHAGE [Concomitant]
  5. TRILEPTAL [Concomitant]
  6. PRILOSEC [Concomitant]
  7. ZOLOFT [Concomitant]
  8. COMBIVENT [Concomitant]
  9. ALBUTEROL [Concomitant]
  10. OXYBUTYNIN [Concomitant]
  11. SENOKOT [Concomitant]
  12. LEXAPRO [Concomitant]

REACTIONS (2)
  - CHEST PAIN [None]
  - SILENT MYOCARDIAL INFARCTION [None]
